FAERS Safety Report 9206177 (Version 1)
Quarter: 2013Q2

REPORT INFORMATION
  Report Type: Spontaneous
  Country: US (occurrence: None)
  Receive Date: 20130401
  Receipt Date: 20130401
  Transmission Date: 20140414
  Serious: No
  Sender: FDA-Public Use
  Company Number: None

PATIENT
  Age: 71 Year
  Sex: Female
  Weight: 63.5 kg

DRUGS (3)
  1. LEVOFLOXACIN [Suspect]
     Indication: HEADACHE
     Route: 048
     Dates: start: 20130222, end: 20130226
  2. LEVOFLOXACIN [Suspect]
     Indication: EAR PAIN
     Route: 048
     Dates: start: 20130222, end: 20130226
  3. PREDNISONE [Suspect]
     Dosage: 3 INTERMITTENT 5DAY COURSE
     Route: 048
     Dates: start: 20130222, end: 20130314

REACTIONS (3)
  - Tendonitis [None]
  - Gait disturbance [None]
  - Pain in extremity [None]
